FAERS Safety Report 4833318-9 (Version None)
Quarter: 2005Q4

REPORT INFORMATION
  Report Type: 
  Country: None (occurrence: None)
  Receive Date: 20051117
  Receipt Date: 20051110
  Transmission Date: 20060501
  Serious: Yes (Hospitalization)
  Sender: FDA-Public Use
  Company Number: 2005BI020416

PATIENT
  Age: 44 Year
  Sex: Female

DRUGS (3)
  1. AVONEX [Suspect]
     Indication: MULTIPLE SCLEROSIS
     Dates: start: 20030406
  2. FRAXIPARINE [Concomitant]
  3. SELDEN [Concomitant]

REACTIONS (2)
  - ANKLE FRACTURE [None]
  - MULTIPLE SCLEROSIS RELAPSE [None]
